FAERS Safety Report 20688038 (Version 4)
Quarter: 2022Q2

REPORT INFORMATION
  Report Type: Spontaneous
  Country: US (occurrence: US)
  Receive Date: 20220408
  Receipt Date: 20220512
  Transmission Date: 20220721
  Serious: Yes (Hospitalization)
  Sender: FDA-Public Use
  Company Number: US-BIOVITRUM-2022US03922

PATIENT
  Sex: Female

DRUGS (5)
  1. DOPTELET [Suspect]
     Active Substance: AVATROMBOPAG MALEATE
     Indication: Thrombocytopenia
     Route: 048
     Dates: start: 20220208
  2. DOPTELET [Suspect]
     Active Substance: AVATROMBOPAG MALEATE
     Dosage: G-TUBE
     Route: 048
     Dates: start: 20220208
  3. DOPTELET [Suspect]
     Active Substance: AVATROMBOPAG MALEATE
     Route: 048
     Dates: start: 202201
  4. DOPTELET [Suspect]
     Active Substance: AVATROMBOPAG MALEATE
     Route: 048
     Dates: start: 20220208
  5. DOPTELET [Suspect]
     Active Substance: AVATROMBOPAG MALEATE
     Route: 058
     Dates: start: 20220208

REACTIONS (7)
  - Platelet count decreased [Unknown]
  - Furuncle [Unknown]
  - Pyrexia [Unknown]
  - Lip swelling [Unknown]
  - Eye contusion [Unknown]
  - Hypertension [Unknown]
  - Lip discolouration [Unknown]
